FAERS Safety Report 4494278-6 (Version None)
Quarter: 2004Q4

REPORT INFORMATION
  Report Type: 
  Country: None (occurrence: None)
  Receive Date: 20041102
  Receipt Date: 20041020
  Transmission Date: 20050328
  Serious: No
  Sender: FDA-Public Use
  Company Number: B0348867A

PATIENT
  Age: 38 Year
  Sex: Female
  Weight: 173.8 kg

DRUGS (1)
  1. PAXIL [Suspect]
     Indication: DEPRESSION
     Dosage: 40 MG ORAL
     Route: 048
     Dates: start: 20000713

REACTIONS (5)
  - ABNORMAL DREAMS [None]
  - BREAST DISORDER [None]
  - EMOTIONAL DISTRESS [None]
  - PARAESTHESIA [None]
  - SUICIDAL IDEATION [None]
